FAERS Safety Report 19397307 (Version 1)
Quarter: 2021Q2

REPORT INFORMATION
  Report Type: Report from Study
  Country: US (occurrence: US)
  Receive Date: 20210609
  Receipt Date: 20210609
  Transmission Date: 20210717
  Serious: Yes (Hospitalization)
  Sender: FDA-Public Use
  Company Number: US-ROCHE-2610180

PATIENT
  Age: 45 Year
  Sex: Female
  Weight: 74.4 kg

DRUGS (1)
  1. ATEZOLIZUMAB. [Suspect]
     Active Substance: ATEZOLIZUMAB
     Indication: COLORECTAL CANCER METASTATIC
     Dosage: 60 MINUTES ON DAY 1 (CYCLE 1) AND 30 MINUTES ON DAY 1 (CYCLE 2)?LAST ADMINISTERED DOSE ON 09/MAR/202
     Route: 042
     Dates: start: 20181003

REACTIONS (3)
  - COVID-19 [Recovering/Resolving]
  - Gastritis [Unknown]
  - Myositis [Unknown]

NARRATIVE: CASE EVENT DATE: 20190902
